FAERS Safety Report 15757444 (Version 5)
Quarter: 2023Q2

REPORT INFORMATION
  Report Type: Report from Study
  Country: JP (occurrence: JP)
  Receive Date: 20181224
  Receipt Date: 20230627
  Transmission Date: 20230721
  Serious: Yes (Other)
  Sender: FDA-Public Use
  Company Number: JP-JT-EVA201803840GILEAD-001

PATIENT
  Age: 44 Year
  Sex: Male

DRUGS (9)
  1. COBICISTAT\ELVITEGRAVIR\EMTRICITABINE\TENOFOVIR [Suspect]
     Active Substance: COBICISTAT\ELVITEGRAVIR\EMTRICITABINE\TENOFOVIR
     Indication: HIV infection
     Dosage: 1 DF, QD
     Route: 048
     Dates: start: 20170509
  2. HALCION [Suspect]
     Active Substance: TRIAZOLAM
     Indication: Product used for unknown indication
     Dosage: UNK
     Route: 048
     Dates: end: 20170613
  3. BROTIZOLAM [Concomitant]
     Active Substance: BROTIZOLAM
     Dosage: UNK
  4. ROZEREM [Concomitant]
     Active Substance: RAMELTEON
     Dosage: UNK
     Dates: end: 20220920
  5. LOPERAMIDE HYDROCHLORIDE [Concomitant]
     Active Substance: LOPERAMIDE HYDROCHLORIDE
     Dosage: UNK
     Dates: start: 20201020
  6. ZOLPIDEM TARTRATE [Concomitant]
     Active Substance: ZOLPIDEM TARTRATE
     Dosage: UNK
  7. MEPENZOLATE BROMIDE [Concomitant]
     Active Substance: MEPENZOLATE BROMIDE
     Dosage: UNK
  8. BUTYLSCOPOLAMINE BROMIDE [Concomitant]
     Active Substance: BUTYLSCOPOLAMINE BROMIDE
     Dosage: UNK
  9. RAMOSETRON HYDROCHLORIDE [Concomitant]
     Active Substance: RAMOSETRON HYDROCHLORIDE
     Dosage: UNK

REACTIONS (6)
  - Hallucination [Recovered/Resolved]
  - Amnesia [Recovered/Resolved]
  - Lipids increased [Not Recovered/Not Resolved]
  - Rhinitis [Unknown]
  - Large intestine polyp [Not Recovered/Not Resolved]
  - Gamma-glutamyltransferase increased [Recovering/Resolving]

NARRATIVE: CASE EVENT DATE: 20170613
